FAERS Safety Report 8825053 (Version 1)
Quarter: 2012Q4

REPORT INFORMATION
  Report Type: 
  Country: JP (occurrence: JP)
  Receive Date: 20121004
  Receipt Date: 20121004
  Transmission Date: 20130627
  Serious: Yes (Other)
  Sender: FDA-Public Use
  Company Number: JP-JNJFOC-20120912135

PATIENT
  Age: 70 Year

DRUGS (1)
  1. FINIBAX [Suspect]
     Indication: CHOLANGITIS ACUTE
     Route: 042
     Dates: start: 20120801, end: 20120807

REACTIONS (1)
  - Hyponatraemia [Recovered/Resolved]
